FAERS Safety Report 13581158 (Version 1)
Quarter: 2017Q2

REPORT INFORMATION
  Report Type: Spontaneous
  Country: US (occurrence: US)
  Receive Date: 20170525
  Receipt Date: 20170525
  Transmission Date: 20170830
  Serious: Yes (Disabling)
  Sender: FDA-Public Use
  Company Number: None

PATIENT
  Age: 67 Year
  Sex: Female
  Weight: 90 kg

DRUGS (4)
  1. ELIQUIS [Suspect]
     Active Substance: APIXABAN
     Indication: SUBARACHNOID HAEMORRHAGE
     Dosage: ?          QUANTITY:1 TABLET(S);?
     Route: 048
     Dates: start: 20150101
  2. VITAMIN [Concomitant]
     Active Substance: VITAMINS
  3. TORPOR XL [Concomitant]
  4. LEVOXYL [Concomitant]
     Active Substance: LEVOTHYROXINE SODIUM

REACTIONS (5)
  - Vomiting [None]
  - Diarrhoea [None]
  - Chills [None]
  - Abdominal discomfort [None]
  - Pancreatic disorder [None]

NARRATIVE: CASE EVENT DATE: 20170521
